FAERS Safety Report 10280141 (Version 3)
Quarter: 2015Q1

REPORT INFORMATION
  Report Type: Report from Study
  Country: US (occurrence: US)
  Receive Date: 20140707
  Receipt Date: 20150220
  Transmission Date: 20150720
  Serious: Yes (Other)
  Sender: FDA-Public Use
  Company Number: US-BAYER-2014-101051

PATIENT
  Age: 68 Year
  Sex: Male

DRUGS (1)
  1. STIVARGA [Suspect]
     Active Substance: REGORAFENIB
     Indication: COLON CANCER
     Dosage: DOSE REGIMEN: 4 X 40 MG
     Route: 048
     Dates: start: 20140529, end: 2014

REACTIONS (8)
  - Muscle spasms [None]
  - Headache [None]
  - Abdominal pain [None]
  - Hot flush [None]
  - Limb discomfort [Unknown]
  - Chest pain [Unknown]
  - Chest discomfort [None]
  - Feeling hot [None]
